FAERS Safety Report 13166733 (Version 1)
Quarter: 2017Q1

REPORT INFORMATION
  Report Type: Spontaneous
  Country: US (occurrence: US)
  Receive Date: 20170131
  Receipt Date: 20170131
  Transmission Date: 20170428
  Serious: Yes (Death, Hospitalization)
  Sender: FDA-Public Use
  Company Number: US-AUROBINDO-AUR-APL-2017-29031

PATIENT
  Age: 67 Year
  Sex: Male

DRUGS (1)
  1. AMLODIPINE [Suspect]
     Active Substance: AMLODIPINE BESYLATE
     Indication: PRODUCT USED FOR UNKNOWN INDICATION
     Route: 048

REACTIONS (8)
  - Intestinal ischaemia [Fatal]
  - Acidosis [Fatal]
  - Toxicity to various agents [Fatal]
  - Hypotension [Fatal]
  - Anuria [Unknown]
  - Completed suicide [Fatal]
  - Unresponsive to stimuli [Unknown]
  - Hypoglycaemia [Unknown]
